FAERS Safety Report 4924898-3 (Version None)
Quarter: 2006Q1

REPORT INFORMATION
  Report Type: 
  Country: None (occurrence: None)
  Receive Date: 20060222
  Receipt Date: 20060213
  Transmission Date: 20060701
  Serious: No
  Sender: FDA-Public Use
  Company Number: 2006-138563-NL

PATIENT
  Sex: Female

DRUGS (3)
  1. MIRTAZAPINE [Suspect]
     Dosage: DF
  2. OLANZAPINE [Concomitant]
  3. CITALOPRAM [Concomitant]

REACTIONS (1)
  - ATRIAL FLUTTER [None]
